FAERS Safety Report 4850638-2 (Version None)
Quarter: 2005Q4

REPORT INFORMATION
  Report Type: 
  Country: None (occurrence: None)
  Receive Date: 20051212
  Receipt Date: 20051130
  Transmission Date: 20060501
  Serious: Yes (Other)
  Sender: FDA-Public Use
  Company Number: US-JNJFOC-20051200131

PATIENT
  Sex: Female
  Weight: 54.89 kg

DRUGS (20)
  1. REMICADE [Suspect]
     Route: 042
  2. REMICADE [Suspect]
     Route: 042
  3. REMICADE [Suspect]
     Indication: RHEUMATOID ARTHRITIS
     Route: 042
  4. PREDNISONE [Concomitant]
  5. ASPIRIN [Concomitant]
  6. CARDIZEM [Concomitant]
  7. LIPITOR [Concomitant]
  8. IMURAN [Concomitant]
  9. POTASSIUM CHLORIDE [Concomitant]
  10. ZANTAC [Concomitant]
  11. ATENOLOL [Concomitant]
  12. COMBIVENT [Concomitant]
  13. COMBIVENT [Concomitant]
  14. ADVAIR INHALER [Concomitant]
  15. ADVAIR INHALER [Concomitant]
  16. LASIX [Concomitant]
  17. HYDROCODONE [Concomitant]
  18. MUCINEX [Concomitant]
  19. MULTIVITAMIN WITH IRON [Concomitant]
  20. CALCIUM GLUCONATE [Concomitant]

REACTIONS (2)
  - LUNG SQUAMOUS CELL CARCINOMA STAGE UNSPECIFIED [None]
  - PNEUMONIA [None]
